FAERS Safety Report 7610691-X (Version None)
Quarter: 2011Q3

REPORT INFORMATION
  Report Type: 
  Country: None (occurrence: None)
  Receive Date: 20110715
  Receipt Date: 20110704
  Transmission Date: 20111222
  Serious: Yes (Death, Hospitalization, Other)
  Sender: FDA-Public Use
  Company Number: GB-SANOFI-AVENTIS-2011SA013454

PATIENT
  Age: 70 Year
  Sex: Male

DRUGS (7)
  1. METHOTREXATE [Suspect]
     Indication: RHEUMATOID ARTHRITIS
     Route: 048
     Dates: start: 20060301, end: 20060601
  2. ARAVA [Suspect]
     Indication: RHEUMATOID ARTHRITIS
     Route: 048
     Dates: start: 20070901, end: 20071201
  3. CODEINE SULFATE [Concomitant]
     Indication: PAIN
     Route: 048
     Dates: start: 20050101, end: 20071201
  4. CORTICOSTEROIDS [Concomitant]
     Route: 030
  5. METHOTREXATE [Suspect]
     Route: 048
     Dates: start: 20060601, end: 20071201
  6. ACETAMINOPHEN [Concomitant]
     Indication: PAIN
     Route: 048
     Dates: start: 20050101, end: 20071201
  7. SULFASALAZINE [Concomitant]
     Dates: start: 20050101, end: 20071201

REACTIONS (9)
  - COUGH [None]
  - DRUG INTERACTION [None]
  - DYSPNOEA [None]
  - FATIGUE [None]
  - INTERSTITIAL LUNG DISEASE [None]
  - RESPIRATORY FAILURE [None]
  - OFF LABEL USE [None]
  - TACHYPNOEA [None]
  - PYREXIA [None]
